FAERS Safety Report 4414333-6 (Version None)
Quarter: 2004Q2

REPORT INFORMATION
  Report Type: 
  Country: None (occurrence: None)
  Receive Date: 20040630
  Receipt Date: 20040526
  Transmission Date: 20050107
  Serious: No
  Sender: FDA-Public Use
  Company Number: 04P-163-0248842-00

PATIENT
  Age: 81 Year
  Sex: Female
  Weight: 54.4316 kg

DRUGS (7)
  1. HUMIRA [Suspect]
     Indication: RHEUMATOID ARTHRITIS
     Dosage: 40 MG, 1 IN 2 WK, SUBCUTANEOUS
     Route: 058
     Dates: start: 20031003
  2. METHOTREXATE [Concomitant]
  3. NABUMETONE [Concomitant]
  4. PROVELL-14 [Concomitant]
  5. CALCIUM WITH VITAMIN D [Concomitant]
  6. FOLIC ACID [Concomitant]
  7. DIPHENHYDRAMINE HCL [Concomitant]

REACTIONS (5)
  - ANOREXIA [None]
  - DIARRHOEA [None]
  - INJECTION SITE PAIN [None]
  - NAUSEA [None]
  - WEIGHT DECREASED [None]
